FAERS Safety Report 20064979 (Version 25)
Quarter: 2022Q1

REPORT INFORMATION
  Report Type: Spontaneous
  Country: GB (occurrence: CA)
  Receive Date: 20211113
  Receipt Date: 20220329
  Transmission Date: 20220423
  Serious: Yes (Hospitalization, Other)
  Sender: FDA-Public Use
  Company Number: GB-EMA-DD-20180309-ngevhprod-150709

PATIENT
  Age: 53 Year
  Sex: Male

DRUGS (138)
  1. HUMIRA [Suspect]
     Active Substance: ADALIMUMAB
     Indication: Crohn^s disease
     Route: 058
     Dates: start: 201707
  2. HUMIRA [Suspect]
     Active Substance: ADALIMUMAB
     Indication: Deep vein thrombosis
  3. ASACOL [Suspect]
     Active Substance: MESALAMINE
     Indication: Colitis ulcerative
     Dosage: 4.8 GRAM QD (0.8 G, 3 TABLETS TWO TIMES A DAY (4.8 G DAILY))
     Route: 065
     Dates: start: 20161001
  4. ASACOL [Suspect]
     Active Substance: MESALAMINE
     Dosage: 4.8 GRAMS, QD
     Route: 065
     Dates: start: 201610
  5. ASACOL [Suspect]
     Active Substance: MESALAMINE
     Route: 065
     Dates: start: 201610
  6. ASACOL [Suspect]
     Active Substance: MESALAMINE
     Route: 065
     Dates: start: 20161001
  7. ASACOL [Suspect]
     Active Substance: MESALAMINE
     Route: 065
     Dates: start: 20211001
  8. ASACOL [Suspect]
     Active Substance: MESALAMINE
     Route: 065
     Dates: start: 20211001
  9. ASACOL [Suspect]
     Active Substance: MESALAMINE
     Route: 065
     Dates: start: 20211001
  10. ASACOL [Suspect]
     Active Substance: MESALAMINE
     Dosage: 0.8 G, 3 TABLETS TWO TIMES A DAY (4.8 G DAILY)
     Route: 065
     Dates: start: 202110
  11. ASACOL [Suspect]
     Active Substance: MESALAMINE
     Dosage: 0.8 G, 3 TABLETS TWO TIMES A DAY (4.8 G DAILY)
     Route: 065
     Dates: start: 202110
  12. ASACOL [Suspect]
     Active Substance: MESALAMINE
     Route: 065
     Dates: start: 20211001
  13. ASACOL [Suspect]
     Active Substance: MESALAMINE
     Route: 065
     Dates: start: 20211001
  14. ASACOL [Suspect]
     Active Substance: MESALAMINE
     Route: 065
     Dates: start: 20161001
  15. ASACOL [Suspect]
     Active Substance: MESALAMINE
     Route: 065
     Dates: start: 201610
  16. ASACOL [Suspect]
     Active Substance: MESALAMINE
     Route: 065
     Dates: start: 20161001
  17. ASACOL [Suspect]
     Active Substance: MESALAMINE
     Route: 065
     Dates: start: 20170101, end: 20170901
  18. ASACOL [Suspect]
     Active Substance: MESALAMINE
     Route: 065
     Dates: start: 201610
  19. BUDESONIDE [Suspect]
     Active Substance: BUDESONIDE
     Indication: Colitis ulcerative
     Route: 048
     Dates: start: 201707
  20. BUDESONIDE [Suspect]
     Active Substance: BUDESONIDE
     Indication: Colitis ulcerative
     Route: 048
     Dates: start: 201707
  21. BUDESONIDE [Suspect]
     Active Substance: BUDESONIDE
     Indication: Colitis ulcerative
     Dosage: 8 DOSAGE FORM, 8 DOSAGE FORM; Q8WEEKS (CYCLICAL) / 245 / 8 DOSAGE FORMS
     Route: 048
     Dates: start: 201707
  22. BUDESONIDE [Suspect]
     Active Substance: BUDESONIDE
     Indication: Colitis ulcerative
     Route: 048
     Dates: start: 201707
  23. BUDESONIDE [Suspect]
     Active Substance: BUDESONIDE
     Route: 048
     Dates: start: 201707
  24. BUDESONIDE [Suspect]
     Active Substance: BUDESONIDE
     Route: 048
     Dates: start: 200707
  25. BUDESONIDE [Suspect]
     Active Substance: BUDESONIDE
     Route: 048
     Dates: start: 200707
  26. ENTYVIO [Suspect]
     Active Substance: VEDOLIZUMAB
     Indication: Colitis ulcerative
     Dosage: 200 UNKNOWN
     Route: 048
     Dates: start: 2017, end: 2017
  27. ENTYVIO [Suspect]
     Active Substance: VEDOLIZUMAB
     Route: 048
     Dates: start: 2017, end: 2017
  28. ENTYVIO [Suspect]
     Active Substance: VEDOLIZUMAB
     Route: 048
     Dates: start: 201807
  29. ENTYVIO [Suspect]
     Active Substance: VEDOLIZUMAB
     Route: 042
     Dates: start: 2017
  30. HYDROCORTISONE [Suspect]
     Active Substance: HYDROCORTISONE
     Indication: Colitis ulcerative
     Route: 048
     Dates: start: 201707
  31. HYDROCORTISONE [Suspect]
     Active Substance: HYDROCORTISONE
     Indication: Crohn^s disease
     Route: 048
     Dates: start: 201807
  32. HYDROCORTISONE [Suspect]
     Active Substance: HYDROCORTISONE
     Route: 048
     Dates: start: 201807
  33. HYDROCORTISONE [Suspect]
     Active Substance: HYDROCORTISONE
     Route: 048
     Dates: start: 201707
  34. HYDROCORTISONE [Suspect]
     Active Substance: HYDROCORTISONE
     Route: 048
     Dates: start: 201707
  35. HYDROCORTISONE [Suspect]
     Active Substance: HYDROCORTISONE
     Route: 048
     Dates: start: 201807
  36. HYDROCORTISONE [Suspect]
     Active Substance: HYDROCORTISONE
     Route: 065
  37. HYDROCORTISONE [Suspect]
     Active Substance: HYDROCORTISONE
     Route: 065
     Dates: start: 201601, end: 201601
  38. HYDROCORTISONE [Suspect]
     Active Substance: HYDROCORTISONE
     Route: 042
  39. HYDROCORTISONE [Suspect]
     Active Substance: HYDROCORTISONE
     Route: 065
     Dates: start: 201601, end: 201610
  40. HYDROCORTISONE [Suspect]
     Active Substance: HYDROCORTISONE
     Route: 048
     Dates: start: 201807
  41. HYDROCORTISONE [Suspect]
     Active Substance: HYDROCORTISONE
     Route: 048
     Dates: start: 201807
  42. HYDROCORTISONE ACETATE [Suspect]
     Active Substance: HYDROCORTISONE ACETATE
     Indication: Colitis ulcerative
     Dosage: 8 DOSAGE FORM
     Route: 065
     Dates: start: 201707
  43. HYDROCORTISONE ACETATE [Suspect]
     Active Substance: HYDROCORTISONE ACETATE
     Indication: Crohn^s disease
     Route: 048
     Dates: start: 201807
  44. HYDROCORTISONE ACETATE [Suspect]
     Active Substance: HYDROCORTISONE ACETATE
     Route: 048
     Dates: start: 201707
  45. HYDROCORTISONE ACETATE [Suspect]
     Active Substance: HYDROCORTISONE ACETATE
     Route: 065
     Dates: start: 201601, end: 201610
  46. HYDROCORTISONE ACETATE [Suspect]
     Active Substance: HYDROCORTISONE ACETATE
     Route: 042
  47. HYDROCORTISONE ACETATE [Suspect]
     Active Substance: HYDROCORTISONE ACETATE
     Route: 048
     Dates: start: 201707
  48. HYDROCORTISONE ACETATE [Suspect]
     Active Substance: HYDROCORTISONE ACETATE
     Route: 048
  49. HYDROCORTISONE ACETATE [Suspect]
     Active Substance: HYDROCORTISONE ACETATE
     Route: 065
     Dates: start: 2017, end: 201709
  50. INFLIXIMAB [Suspect]
     Active Substance: INFLIXIMAB
     Indication: Colitis ulcerative
     Dosage: 0, 2, 6 WEEKS, THEN EVERY 8 WEEKS
     Route: 042
     Dates: start: 20170101, end: 20170901
  51. INFLIXIMAB [Suspect]
     Active Substance: INFLIXIMAB
     Indication: Crohn^s disease
     Dosage: 0, 2, 6 WEEKS, THEN EVERY 8 WEEKS
     Route: 042
     Dates: start: 201709
  52. INFLIXIMAB [Suspect]
     Active Substance: INFLIXIMAB
     Route: 065
     Dates: start: 20171001
  53. INFLIXIMAB [Suspect]
     Active Substance: INFLIXIMAB
     Route: 042
     Dates: end: 201709
  54. INFLIXIMAB [Suspect]
     Active Substance: INFLIXIMAB
     Route: 065
     Dates: start: 20171019
  55. INFLIXIMAB [Suspect]
     Active Substance: INFLIXIMAB
     Route: 042
     Dates: start: 20171019
  56. INFLIXIMAB [Suspect]
     Active Substance: INFLIXIMAB
     Route: 042
     Dates: start: 20171019
  57. INFLIXIMAB [Suspect]
     Active Substance: INFLIXIMAB
     Route: 065
     Dates: start: 20171019
  58. INFLIXIMAB [Suspect]
     Active Substance: INFLIXIMAB
     Route: 042
     Dates: start: 20170101, end: 20170901
  59. MESALAMINE [Suspect]
     Active Substance: MESALAMINE
     Indication: Colitis ulcerative
     Route: 065
     Dates: start: 20161001
  60. MESALAMINE [Suspect]
     Active Substance: MESALAMINE
     Route: 065
     Dates: start: 20161001
  61. MESALAMINE [Suspect]
     Active Substance: MESALAMINE
     Route: 065
     Dates: start: 201601, end: 201610
  62. MESALAMINE [Suspect]
     Active Substance: MESALAMINE
     Route: 065
     Dates: start: 2017, end: 201709
  63. MESALAMINE [Suspect]
     Active Substance: MESALAMINE
     Route: 065
     Dates: start: 20160101, end: 20160101
  64. MESALAMINE [Suspect]
     Active Substance: MESALAMINE
     Route: 065
     Dates: start: 201707
  65. MESALAMINE [Suspect]
     Active Substance: MESALAMINE
     Route: 065
     Dates: start: 20170101, end: 20170901
  66. MESALAMINE [Suspect]
     Active Substance: MESALAMINE
     Route: 065
     Dates: start: 20170101, end: 20170901
  67. MESALAMINE [Suspect]
     Active Substance: MESALAMINE
     Route: 048
     Dates: start: 20160101, end: 20161001
  68. MESALAMINE [Suspect]
     Active Substance: MESALAMINE
     Route: 065
     Dates: start: 20161001
  69. MESALAMINE [Suspect]
     Active Substance: MESALAMINE
     Route: 048
     Dates: start: 20161001
  70. MESALAMINE [Suspect]
     Active Substance: MESALAMINE
     Route: 048
     Dates: start: 201709, end: 201709
  71. MESALAMINE [Suspect]
     Active Substance: MESALAMINE
     Route: 065
     Dates: start: 20170101
  72. MESALAMINE [Suspect]
     Active Substance: MESALAMINE
     Route: 065
     Dates: start: 20170101, end: 20170901
  73. MESALAMINE [Suspect]
     Active Substance: MESALAMINE
     Route: 065
     Dates: start: 2017
  74. MESALAMINE [Suspect]
     Active Substance: MESALAMINE
     Route: 048
     Dates: start: 20160101, end: 20161001
  75. MESALAMINE [Suspect]
     Active Substance: MESALAMINE
     Route: 065
     Dates: start: 201707
  76. MESALAMINE [Suspect]
     Active Substance: MESALAMINE
     Route: 065
     Dates: start: 20160101, end: 20161001
  77. MESALAMINE [Suspect]
     Active Substance: MESALAMINE
     Route: 065
     Dates: start: 2009
  78. MESALAMINE [Suspect]
     Active Substance: MESALAMINE
     Route: 065
     Dates: start: 202109, end: 202109
  79. MESALAMINE [Suspect]
     Active Substance: MESALAMINE
     Dosage: 3 DOSAGE FORM, BID
     Route: 065
     Dates: start: 20161001
  80. MESALAMINE [Suspect]
     Active Substance: MESALAMINE
     Dosage: UNK
     Route: 065
     Dates: start: 20170101, end: 20171001
  81. MESALAMINE [Suspect]
     Active Substance: MESALAMINE
     Route: 048
     Dates: start: 20170901, end: 2019
  82. MESALAMINE [Suspect]
     Active Substance: MESALAMINE
     Route: 065
     Dates: start: 201706
  83. MESALAMINE [Suspect]
     Active Substance: MESALAMINE
     Route: 065
     Dates: start: 20160110
  84. MESALAMINE [Suspect]
     Active Substance: MESALAMINE
     Route: 065
     Dates: start: 20170901, end: 2019
  85. MESALAMINE [Suspect]
     Active Substance: MESALAMINE
     Dosage: CYCLIC
     Route: 048
     Dates: start: 201706
  86. PREDNISONE [Suspect]
     Active Substance: PREDNISONE
     Indication: Colitis ulcerative
     Route: 065
  87. PREDNISONE [Suspect]
     Active Substance: PREDNISONE
     Route: 065
     Dates: start: 2009, end: 2009
  88. PREDNISONE [Suspect]
     Active Substance: PREDNISONE
     Route: 065
     Dates: start: 2009, end: 2016
  89. PREDNISONE [Suspect]
     Active Substance: PREDNISONE
     Route: 065
     Dates: start: 2017, end: 2017
  90. PREDNISONE [Suspect]
     Active Substance: PREDNISONE
     Dosage: 8 DOSAGE FORM
     Route: 048
     Dates: start: 201707
  91. PREDNISONE [Suspect]
     Active Substance: PREDNISONE
     Route: 065
     Dates: start: 2017
  92. WARFARIN SODIUM [Suspect]
     Active Substance: WARFARIN SODIUM
     Indication: Deep vein thrombosis
     Route: 048
     Dates: end: 2009
  93. WARFARIN SODIUM [Suspect]
     Active Substance: WARFARIN SODIUM
     Indication: Colitis ulcerative
     Route: 048
     Dates: start: 201707, end: 201707
  94. WARFARIN SODIUM [Suspect]
     Active Substance: WARFARIN SODIUM
     Route: 048
     Dates: start: 201707
  95. WARFARIN SODIUM [Suspect]
     Active Substance: WARFARIN SODIUM
     Dosage: TAPERED DOSE IN 2009 (EXACT DOSE UNKNOWN)
     Route: 048
     Dates: start: 2019
  96. WARFARIN SODIUM [Suspect]
     Active Substance: WARFARIN SODIUM
     Route: 065
     Dates: start: 2009
  97. VEDOLIZUMAB [Suspect]
     Active Substance: VEDOLIZUMAB
     Indication: Colitis ulcerative
     Route: 042
     Dates: start: 2017, end: 2017
  98. VEDOLIZUMAB [Suspect]
     Active Substance: VEDOLIZUMAB
     Indication: Deep vein thrombosis
     Route: 042
     Dates: start: 2017, end: 2017
  99. VEDOLIZUMAB [Suspect]
     Active Substance: VEDOLIZUMAB
     Route: 017
     Dates: start: 2017, end: 2017
  100. VEDOLIZUMAB [Suspect]
     Active Substance: VEDOLIZUMAB
     Route: 065
     Dates: start: 2019
  101. VEDOLIZUMAB [Suspect]
     Active Substance: VEDOLIZUMAB
     Route: 048
     Dates: start: 2017, end: 2017
  102. VEDOLIZUMAB [Suspect]
     Active Substance: VEDOLIZUMAB
     Route: 065
     Dates: start: 2019
  103. VEDOLIZUMAB [Suspect]
     Active Substance: VEDOLIZUMAB
     Route: 048
  104. VEDOLIZUMAB [Suspect]
     Active Substance: VEDOLIZUMAB
     Route: 065
     Dates: end: 2017
  105. BUDESONIDE [Suspect]
     Active Substance: BUDESONIDE
     Indication: Colitis ulcerative
     Route: 048
     Dates: start: 200707
  106. BUDESONIDE [Suspect]
     Active Substance: BUDESONIDE
     Route: 048
     Dates: start: 201707
  107. BUDESONIDE [Suspect]
     Active Substance: BUDESONIDE
     Route: 048
  108. BUDESONIDE [Suspect]
     Active Substance: BUDESONIDE
     Route: 048
     Dates: start: 20170701
  109. CORTIFOAM [Suspect]
     Active Substance: HYDROCORTISONE ACETATE
     Indication: Colitis ulcerative
     Route: 048
     Dates: start: 201707
  110. CORTIFOAM [Suspect]
     Active Substance: HYDROCORTISONE ACETATE
     Route: 048
     Dates: start: 201707
  111. CORTIFOAM [Suspect]
     Active Substance: HYDROCORTISONE ACETATE
     Route: 048
     Dates: start: 20170101, end: 20170901
  112. CORTIFOAM [Suspect]
     Active Substance: HYDROCORTISONE ACETATE
     Route: 048
     Dates: start: 20171010
  113. MESALAMINE [Suspect]
     Active Substance: MESALAMINE
     Indication: Colitis ulcerative
     Route: 048
     Dates: start: 201601, end: 201610
  114. MESALAMINE [Suspect]
     Active Substance: MESALAMINE
     Route: 048
     Dates: start: 20160101, end: 20161001
  115. MESALAMINE [Suspect]
     Active Substance: MESALAMINE
     Route: 048
     Dates: start: 201601, end: 201610
  116. MESALAMINE [Suspect]
     Active Substance: MESALAMINE
     Route: 048
     Dates: start: 2017, end: 2017
  117. MESALAMINE [Suspect]
     Active Substance: MESALAMINE
     Route: 048
     Dates: start: 201707
  118. MESALAMINE [Suspect]
     Active Substance: MESALAMINE
     Route: 065
     Dates: start: 201709, end: 201709
  119. MESALAMINE [Suspect]
     Active Substance: MESALAMINE
     Route: 065
     Dates: start: 20161001
  120. MESALAMINE [Suspect]
     Active Substance: MESALAMINE
     Route: 065
     Dates: start: 20160101, end: 20161001
  121. MESALAMINE [Suspect]
     Active Substance: MESALAMINE
     Route: 065
     Dates: start: 20170101
  122. MESALAMINE [Suspect]
     Active Substance: MESALAMINE
     Route: 065
     Dates: start: 20161001
  123. MESALAMINE [Suspect]
     Active Substance: MESALAMINE
     Route: 065
     Dates: start: 2017, end: 201709
  124. MESALAMINE [Suspect]
     Active Substance: MESALAMINE
     Route: 065
     Dates: start: 2009
  125. MESALAMINE [Suspect]
     Active Substance: MESALAMINE
     Route: 065
     Dates: start: 202109, end: 202109
  126. MESALAMINE [Suspect]
     Active Substance: MESALAMINE
     Route: 065
     Dates: start: 20161001
  127. MESALAMINE [Suspect]
     Active Substance: MESALAMINE
     Route: 065
     Dates: start: 20170101, end: 20171001
  128. METHOTREXATE [Concomitant]
     Active Substance: METHOTREXATE
     Indication: Colitis ulcerative
     Dates: start: 20090101, end: 20160101
  129. METHOTREXATE [Concomitant]
     Active Substance: METHOTREXATE
     Route: 065
     Dates: start: 201709, end: 201709
  130. SULFASALAZINE [Concomitant]
     Active Substance: SULFASALAZINE
     Indication: Crohn^s disease
     Dates: start: 20090101, end: 20160101
  131. SULFASALAZINE [Concomitant]
     Active Substance: SULFASALAZINE
     Indication: Colitis ulcerative
     Route: 065
     Dates: start: 201709, end: 201709
  132. SULFASALAZINE [Concomitant]
     Active Substance: SULFASALAZINE
     Route: 065
     Dates: start: 20160101, end: 20160101
  133. SULFASALAZINE [Concomitant]
     Active Substance: SULFASALAZINE
     Route: 065
     Dates: start: 20091001, end: 20161001
  134. SULFASALAZINE [Concomitant]
     Active Substance: SULFASALAZINE
     Route: 048
  135. SULFASALAZINE [Concomitant]
     Active Substance: SULFASALAZINE
     Route: 065
     Dates: start: 20090101, end: 20160101
  136. SULFASALAZINE [Concomitant]
     Active Substance: SULFASALAZINE
     Route: 048
  137. CORTIMENT [Concomitant]
     Indication: Product used for unknown indication
     Route: 048
  138. ASACOL [Concomitant]
     Active Substance: MESALAMINE
     Indication: Product used for unknown indication
     Dosage: 3 DOSAGE FORMS 2 DAYS
     Route: 065
     Dates: start: 201610

REACTIONS (19)
  - Frequent bowel movements [Unknown]
  - Loss of personal independence in daily activities [Unknown]
  - Weight decreased [Unknown]
  - Loss of personal independence in daily activities [Unknown]
  - Condition aggravated [Unknown]
  - Deep vein thrombosis [Unknown]
  - Bronchiectasis [Unknown]
  - Colitis ulcerative [Unknown]
  - Off label use [Unknown]
  - Product use in unapproved indication [Unknown]
  - Medication error [Unknown]
  - Drug ineffective [Unknown]
  - Steroid dependence [Unknown]
  - Impaired work ability [Unknown]
  - Intentional product use issue [Not Recovered/Not Resolved]
  - Inappropriate schedule of product administration [Not Recovered/Not Resolved]
  - Stress [Not Recovered/Not Resolved]
  - Haematochezia [Unknown]
  - Rectal haemorrhage [Unknown]
